FAERS Safety Report 5788714-2 (Version None)
Quarter: 2008Q2

REPORT INFORMATION
  Report Type: 
  Country: None (occurrence: None)
  Receive Date: 20080626
  Receipt Date: 20080619
  Transmission Date: 20081010
  Serious: Yes (Hospitalization)
  Sender: FDA-Public Use
  Company Number: DK-ABBOTT-08P-044-0459069-00

PATIENT
  Sex: Male

DRUGS (2)
  1. HUMIRA [Suspect]
     Indication: DRUG USE FOR UNKNOWN INDICATION
     Dates: start: 20040101, end: 20050101
  2. UNSPECIFIED MEDICATION FOR ARTHRITIS [Concomitant]
     Indication: ARTHRITIS

REACTIONS (1)
  - PLEURAL FIBROSIS [None]
